FAERS Safety Report 8949890 (Version 2)
Quarter: 2012Q4

REPORT INFORMATION
  Report Type: 
  Country: US (occurrence: US)
  Receive Date: 20121206
  Receipt Date: 20121210
  Transmission Date: 20130627
  Serious: Yes (Other)
  Sender: FDA-Public Use
  Company Number: US-PFIZER INC-2012306485

PATIENT
  Age: 41 Year
  Sex: Female
  Weight: 104 kg

DRUGS (3)
  1. LYRICA [Suspect]
     Indication: NERVE PAIN
     Dosage: 75 mg, 2x/day
     Dates: start: 201203, end: 2012
  2. LYRICA [Suspect]
     Dosage: 75 mg, 1x/day
     Dates: start: 2012, end: 2012
  3. LYRICA [Suspect]
     Dosage: 75 mg, 2x/day
     Dates: start: 2012

REACTIONS (11)
  - Cardiac disorder [Unknown]
  - Back disorder [Unknown]
  - Disorientation [Unknown]
  - Thyroiditis [Unknown]
  - Goitre [Unknown]
  - Tinnitus [Unknown]
  - Migraine [Recovering/Resolving]
  - Hyperventilation [Unknown]
  - Abdominal discomfort [Unknown]
  - Nausea [Unknown]
  - Insomnia [Unknown]
